FAERS Safety Report 24026622 (Version 1)
Quarter: 2024Q2

REPORT INFORMATION
  Report Type: Report from Study
  Country: JP (occurrence: JP)
  Receive Date: 20240628
  Receipt Date: 20240628
  Transmission Date: 20240716
  Serious: No
  Sender: FDA-Public Use
  Company Number: JP-CHUGAI-2024017641

PATIENT
  Age: 47 Year
  Sex: Male
  Weight: 77.0 kg

DRUGS (3)
  1. PHESGO [Suspect]
     Active Substance: HYALURONIDASE-ZZXF\PERTUZUMAB\TRASTUZUMAB
     Indication: HER2 positive colorectal cancer
     Dosage: 15 MILLILITER
     Route: 058
     Dates: start: 20231129, end: 20231129
  2. PHESGO [Suspect]
     Active Substance: HYALURONIDASE-ZZXF\PERTUZUMAB\TRASTUZUMAB
     Dosage: 10 MILLILITER
     Route: 058
     Dates: start: 20231221, end: 20231221
  3. PHESGO [Suspect]
     Active Substance: HYALURONIDASE-ZZXF\PERTUZUMAB\TRASTUZUMAB
     Dosage: 10 MILLILITER, MOST RECENT DOSE ADMINISTERED O 11/JAN/2024
     Route: 058
     Dates: start: 20240111

REACTIONS (3)
  - Pyrexia [Recovered/Resolved]
  - Malaise [Recovered/Resolved]
  - Drug ineffective [Unknown]

NARRATIVE: CASE EVENT DATE: 20231129
